FAERS Safety Report 4970434-5 (Version None)
Quarter: 2006Q2

REPORT INFORMATION
  Report Type: 
  Country: None (occurrence: None)
  Receive Date: 20060406
  Receipt Date: 20060331
  Transmission Date: 20061013
  Serious: Yes (Other)
  Sender: FDA-Public Use
  Company Number: 2006045680

PATIENT
  Sex: Male

DRUGS (2)
  1. LYRICA [Suspect]
     Indication: DIABETES MELLITUS
  2. NEOSPORIN [Concomitant]

REACTIONS (4)
  - BACK DISORDER [None]
  - CARDIAC DISORDER [None]
  - HIP ARTHROPLASTY [None]
  - HYPERTENSION [None]
